FAERS Safety Report 5829172-9 (Version None)
Quarter: 2008Q3

REPORT INFORMATION
  Report Type: 
  Country: None (occurrence: None)
  Receive Date: 20080731
  Receipt Date: 20080725
  Transmission Date: 20090109
  Serious: Yes (Death)
  Sender: FDA-Public Use
  Company Number: US-PURDUE-USA_2008_0033733

PATIENT
  Age: 44 Year
  Sex: Male
  Weight: 82 kg

DRUGS (1)
  1. OXYCONTIN [Suspect]
     Indication: BACK PAIN
     Dosage: 80 MG, BID
     Route: 048
     Dates: start: 20080423, end: 20080620

REACTIONS (1)
  - MYOCARDIAL INFARCTION [None]
